FAERS Safety Report 4888431-7 (Version None)
Quarter: 2006Q1

REPORT INFORMATION
  Report Type: 
  Country: None (occurrence: None)
  Receive Date: 20060119
  Receipt Date: 20060119
  Transmission Date: 20060701
  Serious: Yes (Hospitalization)
  Sender: FDA-Public Use
  Company Number: None

PATIENT
  Age: 57 Year
  Sex: Male
  Weight: 117.4816 kg

DRUGS (1)
  1. MORPHINE [Suspect]
     Dosage: 30 MG EXT REL. BID
     Dates: start: 20051015, end: 20051017

REACTIONS (6)
  - ACIDOSIS [None]
  - CONDITION AGGRAVATED [None]
  - DRUG INEFFECTIVE [None]
  - MENTAL STATUS CHANGES [None]
  - PAIN [None]
  - RESPIRATORY DISTRESS [None]
